FAERS Safety Report 19598324 (Version 4)
Quarter: 2023Q1

REPORT INFORMATION
  Report Type: Report from Study
  Country: DE (occurrence: DE)
  Receive Date: 20210722
  Receipt Date: 20230310
  Transmission Date: 20230418
  Serious: No
  Sender: FDA-Public Use
  Company Number: DE-NOVARTISPH-NVSC2020DE198467

PATIENT
  Sex: Female
  Weight: 65 kg

DRUGS (5)
  1. MAYZENT [Suspect]
     Active Substance: SIPONIMOD
     Indication: Secondary progressive multiple sclerosis
     Dosage: 2 MG, QD
     Route: 048
     Dates: start: 20200630, end: 20210422
  2. MAYZENT [Suspect]
     Active Substance: SIPONIMOD
     Dosage: 2 MG, QD
     Route: 048
     Dates: start: 20210707
  3. PREGABALIN [Concomitant]
     Active Substance: PREGABALIN
     Indication: Pain
     Dosage: UNK
     Route: 065
     Dates: start: 20211103, end: 20211107
  4. ACETAMINOPHEN\CODEINE PHOSPHATE [Concomitant]
     Active Substance: ACETAMINOPHEN\CODEINE PHOSPHATE
     Indication: Product used for unknown indication
     Dosage: 500 MG
     Route: 065
  5. LEVODOPA [Concomitant]
     Active Substance: LEVODOPA
     Indication: Pain
     Dosage: UNK
     Route: 065
     Dates: start: 20211021, end: 20211023

REACTIONS (7)
  - Liver function test increased [Not Recovered/Not Resolved]
  - Blood cholesterol increased [Recovering/Resolving]
  - Hand deformity [Recovering/Resolving]
  - Meniscus injury [Recovering/Resolving]
  - Gastritis [Recovered/Resolved]
  - Abdominal neoplasm [Recovered/Resolved]
  - Pain [Recovering/Resolving]

NARRATIVE: CASE EVENT DATE: 20200707
